FAERS Safety Report 14775351 (Version 3)
Quarter: 2018Q3

REPORT INFORMATION
  Report Type: Spontaneous
  Country: DE (occurrence: DE)
  Receive Date: 20180418
  Receipt Date: 20180703
  Transmission Date: 20181010
  Serious: Yes (Death, Other)
  Sender: FDA-Public Use
  Company Number: DE-PFIZER INC-2018151359

PATIENT
  Age: 54 Year
  Sex: Female

DRUGS (7)
  1. PALBOCICLIB [Suspect]
     Active Substance: PALBOCICLIB
     Dosage: 75 MG, CYCLIC
  2. PALBOCICLIB [Suspect]
     Active Substance: PALBOCICLIB
     Dosage: UNK, CYCLIC, 8TH CYCLE
     Dates: start: 20170721
  3. PALBOCICLIB [Suspect]
     Active Substance: PALBOCICLIB
     Dosage: UNK UNK, CYCLIC
  4. PALBOCICLIB [Suspect]
     Active Substance: PALBOCICLIB
     Dosage: 100 MG, CYCLIC (DAILY, 2ND CYCLE)
  5. FASLODEX [Suspect]
     Active Substance: FULVESTRANT
     Dosage: 75 MG, UNK
     Dates: start: 20170623
  6. PALBOCICLIB [Suspect]
     Active Substance: PALBOCICLIB
     Dosage: UNK, CYCLIC (7TH CYCLE)
     Dates: start: 20170623
  7. ZOMETA [Suspect]
     Active Substance: ZOLEDRONIC ACID
     Dosage: UNK, CYCLIC (EVERY 8 WEEKS)
     Dates: start: 201609, end: 201612

REACTIONS (7)
  - Haemoglobin decreased [Unknown]
  - Cachexia [Unknown]
  - Leukopenia [Unknown]
  - Fatigue [Unknown]
  - Death [Fatal]
  - Back pain [Unknown]
  - Anaemia [Unknown]

NARRATIVE: CASE EVENT DATE: 20170815
